FAERS Safety Report 7956279-2 (Version None)
Quarter: 2011Q4

REPORT INFORMATION
  Report Type: 
  Country: None (occurrence: None)
  Receive Date: 20111125
  Receipt Date: 20111117
  Transmission Date: 20120403
  Serious: Yes (Hospitalization, Other)
  Sender: FDA-Public Use
  Company Number: AEUSA201100317

PATIENT
  Age: 35 Year
  Sex: Female

DRUGS (1)
  1. GAMUNEX [Suspect]
     Indication: MYASTHENIA GRAVIS
     Dosage: IV
     Route: 042
     Dates: start: 20110901

REACTIONS (3)
  - ANTIBODY TEST POSITIVE [None]
  - PULMONARY EMBOLISM [None]
  - HAEMOLYSIS [None]
